FAERS Safety Report 18249292 (Version 1)
Quarter: 2020Q3

REPORT INFORMATION
  Report Type: Spontaneous
  Country: FR (occurrence: FR)
  Receive Date: 20200909
  Receipt Date: 20200909
  Transmission Date: 20201103
  Serious: Yes (Hospitalization)
  Sender: FDA-Public Use
  Company Number: FR-ALLERGAN-2034068US

PATIENT
  Sex: Female

DRUGS (1)
  1. COMBIGAN [Suspect]
     Active Substance: BRIMONIDINE TARTRATE\TIMOLOL MALEATE
     Indication: GLAUCOMA
     Dosage: UNK
     Route: 047
     Dates: start: 20200625, end: 20200806

REACTIONS (5)
  - Paraesthesia [Recovering/Resolving]
  - Hypertension [Recovering/Resolving]
  - Facial paralysis [Recovering/Resolving]
  - Gait disturbance [Recovering/Resolving]
  - Bradycardia [Recovering/Resolving]
